FAERS Safety Report 5863922-0 (Version None)
Quarter: 2008Q3

REPORT INFORMATION
  Report Type: 
  Country: None (occurrence: None)
  Receive Date: 20080829
  Receipt Date: 20080825
  Transmission Date: 20090109
  Serious: Yes (Hospitalization)
  Sender: FDA-Public Use
  Company Number: US-BAYER-200824994GPV

PATIENT
  Sex: Male

DRUGS (2)
  1. SORAFENIB [Suspect]
     Indication: METASTATIC NEOPLASM
     Route: 048
     Dates: start: 20080201, end: 20080717
  2. AMG 386 OR PLACEBO [Suspect]
     Indication: METASTATIC NEOPLASM
     Route: 042
     Dates: start: 20080201, end: 20080717

REACTIONS (1)
  - LUNG NEOPLASM [None]
